FAERS Safety Report 8440241 (Version 2)
Quarter: 2012Q4

REPORT INFORMATION
  Report Type: 
  Country: ES (occurrence: ES)
  Receive Date: 20120305
  Receipt Date: 20121025
  Transmission Date: 20130627
  Serious: Yes (Life-Threatening, Hospitalization)
  Sender: FDA-Public Use
  Company Number: ES-SANOFI-AVENTIS-2012SA012314

PATIENT
  Age: 73 Year
  Sex: Female

DRUGS (6)
  1. SEGURIL [Suspect]
     Indication: CARDIAC FAILURE
     Route: 048
     Dates: start: 20090625, end: 20090804
  2. SEGURIL [Interacting]
     Indication: CARDIAC FAILURE
     Route: 048
     Dates: end: 20090624
  3. DIGOXIN [Interacting]
     Indication: ATRIAL FIBRILLATION
     Route: 048
     Dates: end: 20090804
  4. DIOVANE [Concomitant]
     Indication: CARDIAC FAILURE
     Route: 048
     Dates: start: 200903, end: 20090723
  5. ALDACTONE [Concomitant]
     Indication: CARDIAC FAILURE
     Route: 048
     Dates: end: 20090723
  6. SINTROM [Concomitant]
     Indication: ATRIAL FIBRILLATION
     Route: 048
     Dates: end: 20090804

REACTIONS (1)
  - Toxicity to various agents [Recovered/Resolved]
